FAERS Safety Report 17879424 (Version 1)
Quarter: 2020Q2

REPORT INFORMATION
  Report Type: Spontaneous
  Country: US (occurrence: US)
  Receive Date: 20200609
  Receipt Date: 20200609
  Transmission Date: 20200714
  Serious: No
  Sender: FDA-Public Use
  Company Number: None

PATIENT
  Age: 60 Year
  Sex: Female

DRUGS (2)
  1. HUMIRA [Suspect]
     Active Substance: ADALIMUMAB
     Indication: PSORIASIS
     Dosage: ?          OTHER DOSE:80MG (2SYRINGES) ON DAY 1, 40MG(1 SYRINGE) SUBCUTANEOUSLY DAY 8, THEN 40M EVERY OTHER WEEK AS?
     Route: 058
     Dates: start: 201904
  2. HUMIRA [Suspect]
     Active Substance: ADALIMUMAB
     Indication: PSORIATIC ARTHROPATHY
     Dosage: ?          OTHER DOSE:80MG (2SYRINGES) ON DAY 1, 40MG(1 SYRINGE) SUBCUTANEOUSLY DAY 8, THEN 40M EVERY OTHER WEEK AS?
     Route: 058
     Dates: start: 201904

REACTIONS (2)
  - Fall [None]
  - Inflammation [None]
